FAERS Safety Report 5033415-1 (Version None)
Quarter: 2006Q2

REPORT INFORMATION
  Report Type: 
  Country: None (occurrence: None)
  Receive Date: 20060623
  Receipt Date: 20060607
  Transmission Date: 20061013
  Serious: Yes (Other)
  Sender: FDA-Public Use
  Company Number: 254085

PATIENT
  Age: 32 Year
  Sex: Male

DRUGS (2)
  1. ACTRAPID [Suspect]
     Indication: DIABETES MELLITUS INSULIN-DEPENDENT
     Dates: start: 19910101
  2. INSULATARD NPH HUMAN [Suspect]
     Indication: DIABETES MELLITUS INSULIN-DEPENDENT
     Dates: start: 19910101

REACTIONS (3)
  - CACHEXIA [None]
  - CATARACT [None]
  - VISUAL ACUITY REDUCED [None]
